FAERS Safety Report 11717171 (Version 3)
Quarter: 2015Q4

REPORT INFORMATION
  Report Type: Spontaneous
  Country: US (occurrence: US)
  Receive Date: 20151104
  Receipt Date: 20151120
  Transmission Date: 20160304
  Serious: No
  Sender: FDA-Public Use
  Company Number: US-ELI_LILLY_AND_COMPANY-US201108000785

PATIENT
  Sex: Female

DRUGS (3)
  1. FORTEO [Suspect]
     Active Substance: TERIPARATIDE
     Indication: OSTEOPOROSIS
     Dosage: QD, UNKNOWN
     Route: 065
     Dates: start: 201106
  2. FORTEO [Suspect]
     Active Substance: TERIPARATIDE
     Dosage: UNK, QD
     Route: 065
  3. FORTEO [Suspect]
     Active Substance: TERIPARATIDE
     Dosage: UNK, QD
     Route: 065

REACTIONS (7)
  - Limb discomfort [Unknown]
  - Back pain [Not Recovered/Not Resolved]
  - Injection site pain [Unknown]
  - Pain [Unknown]
  - Drug ineffective [Unknown]
  - Injection site bruising [Unknown]
  - Increased tendency to bruise [Unknown]
